FAERS Safety Report 4958490-1 (Version None)
Quarter: 2006Q1

REPORT INFORMATION
  Report Type: 
  Country: None (occurrence: None)
  Receive Date: 20060201
  Receipt Date: 20051021
  Transmission Date: 20060701
  Serious: No
  Sender: FDA-Public Use
  Company Number: 2005PV003934

PATIENT
  Age: 67 Year
  Sex: Female
  Weight: 90.7194 kg

DRUGS (6)
  1. BYETTA [Suspect]
     Indication: DIABETES MELLITUS NON-INSULIN-DEPENDENT
     Dosage: 5 MCG;BID;SC
     Route: 058
     Dates: start: 20051017
  2. AVANDIA [Concomitant]
  3. METFORMIN [Concomitant]
  4. TRIAMTERENE [Concomitant]
  5. METAMUCIL-2 [Concomitant]
  6. ENZYMES NOS [Concomitant]

REACTIONS (1)
  - ENERGY INCREASED [None]
